FAERS Safety Report 20788574 (Version 1)
Quarter: 2022Q2

REPORT INFORMATION
  Report Type: Spontaneous
  Country: US (occurrence: US)
  Receive Date: 20220505
  Receipt Date: 20220505
  Transmission Date: 20220720
  Serious: No
  Sender: FDA-Public Use
  Company Number: US-APOTEX-2022AP003728

PATIENT
  Sex: Male

DRUGS (3)
  1. SIROLIMUS [Suspect]
     Active Substance: SIROLIMUS
     Indication: Respiratory disorder
     Dosage: 0.8 MILLIGRAM/SQ. METER, Q.12H
     Route: 048
  2. SIROLIMUS [Suspect]
     Active Substance: SIROLIMUS
     Indication: Pulmonary hypertension
     Dosage: 0.4 MILLIGRAM/SQ. METER, EVERY 72 HOURS
     Route: 048
  3. SIROLIMUS [Suspect]
     Active Substance: SIROLIMUS
     Indication: Arteriovenous malformation

REACTIONS (2)
  - Off label use [Unknown]
  - Hypertriglyceridaemia [Recovering/Resolving]
